FAERS Safety Report 4682858-4 (Version None)
Quarter: 2005Q2

REPORT INFORMATION
  Report Type: 
  Country: None (occurrence: None)
  Receive Date: 20050606
  Receipt Date: 20050603
  Transmission Date: 20051028
  Serious: Yes (Death, Hospitalization)
  Sender: FDA-Public Use
  Company Number: DE-BRISTOL-MYERS SQUIBB COMPANY-12993895

PATIENT
  Age: 64 Year
  Sex: Male
  Weight: 56 kg

DRUGS (5)
  1. CISPLATIN [Suspect]
     Indication: NON-SMALL CELL LUNG CANCER
     Dosage: 129 MG ON 07-DEC-2004
     Route: 042
     Dates: start: 20041117, end: 20041207
  2. ALIMTA [Suspect]
     Indication: NON-SMALL CELL LUNG CANCER
     Dosage: 860 MG ON 07-DEC-2004
     Route: 042
     Dates: start: 20041117, end: 20041207
  3. VITAMIN B-12 [Concomitant]
     Indication: PROPHYLAXIS
     Dates: start: 20041112, end: 20041112
  4. LAFOL [Concomitant]
     Indication: PROPHYLAXIS
     Dates: start: 20041112
  5. DEXAMETHASONE [Concomitant]
     Indication: PROPHYLAXIS
     Dates: start: 20041116, end: 20041208

REACTIONS (5)
  - ANOREXIA [None]
  - FEMUR FRACTURE [None]
  - GASTRITIS [None]
  - PNEUMONIA [None]
  - PULMONARY OEDEMA [None]
